FAERS Safety Report 13663668 (Version 1)
Quarter: 2017Q2

REPORT INFORMATION
  Report Type: Spontaneous
  Country: US (occurrence: US)
  Receive Date: 20170616
  Receipt Date: 20170616
  Transmission Date: 20170830
  Serious: No
  Sender: FDA-Public Use
  Company Number: None

PATIENT
  Age: 38 Year
  Sex: Female

DRUGS (9)
  1. NOLVADEX [Concomitant]
     Active Substance: TAMOXIFEN CITRATE
  2. IBUPROFEN. [Concomitant]
     Active Substance: IBUPROFEN
  3. FOLIC ACID. [Concomitant]
     Active Substance: FOLIC ACID
  4. TOPAMAX [Concomitant]
     Active Substance: TOPIRAMATE
  5. BACLOFEN. [Concomitant]
     Active Substance: BACLOFEN
  6. ZONEGRAN [Concomitant]
     Active Substance: ZONISAMIDE
  7. CLONAZEPAM. [Concomitant]
     Active Substance: CLONAZEPAM
  8. EFFEXOR [Concomitant]
     Active Substance: VENLAFAXINE HYDROCHLORIDE
  9. AMPYRA [Suspect]
     Active Substance: DALFAMPRIDINE
     Indication: MYELOPATHY
     Route: 048

REACTIONS (1)
  - Off label use [None]

NARRATIVE: CASE EVENT DATE: 20170616
